FAERS Safety Report 20941266 (Version 2)
Quarter: 2022Q2

REPORT INFORMATION
  Report Type: Spontaneous
  Country: PK (occurrence: PK)
  Receive Date: 20220609
  Receipt Date: 20220617
  Transmission Date: 20220721
  Serious: Yes (Other)
  Sender: FDA-Public Use
  Company Number: PK-PFIZER INC-202101748032

PATIENT
  Age: 57 Year
  Sex: Female
  Weight: 105 kg

DRUGS (13)
  1. ENBREL [Suspect]
     Active Substance: ETANERCEPT
     Indication: Rheumatoid arthritis
     Dosage: 50 MG, WEEKLYCONTINUE
     Route: 058
     Dates: start: 20211104
  2. CYTOTREXATE [Concomitant]
     Dosage: 4 X TABLETS, TWO TIMES A WEEK. AFTER MEAL, CONTINUE,
  3. CYTOTREXATE [Concomitant]
     Dosage: 10 MG, 1.5X TABLETS, ONCE A WEEK CONTINUE
  4. FOLIC ACID [Concomitant]
     Active Substance: FOLIC ACID
     Dosage: 1 X TABLETS. TWO TIMES A WEEK CONTINUE MON TUE
  5. FOLIC ACID [Concomitant]
     Active Substance: FOLIC ACID
     Dosage: 5 MG, 1 X TABLETS. ONCE A DAY CONTINUE, OFF ON SAT SUN
  6. SALAZODINE [Concomitant]
     Dosage: 1 + 0 + 1 + 0 AFTER MEAL
  7. DELTACORTRIL [Concomitant]
     Active Substance: PREDNISOLONE
     Dosage: 1 + 0 + 0 + 0. AFTER MEAL
  8. STARCOX [Concomitant]
     Dosage: 0 + 0 + 1 + 0. AFTER MEAL
  9. OSTEOCARE [CALCIUM;COLECALCIFEROL;MAGNESIUM;ZINC] [Concomitant]
     Dosage: UNK, QD
  10. FERRICURE [FERRIC HYDROXIDE POLYMALTOSE COMPLEX] [Concomitant]
     Dosage: 0 + 1 + 0 + 0
  11. FERRICURE [FERRIC HYDROXIDE POLYMALTOSE COMPLEX] [Concomitant]
     Dosage: 50 MILLIGRAM
  12. FERRICURE [FERRIC HYDROXIDE POLYMALTOSE COMPLEX] [Concomitant]
     Dosage: 50 UNK
  13. DULANE [Concomitant]
     Dosage: 20 MG 1 + 0 + 0 + 0. AFTER MEAL

REACTIONS (9)
  - Hypertension [Unknown]
  - Mean cell volume decreased [Unknown]
  - Product prescribing error [Unknown]
  - Musculoskeletal stiffness [Unknown]
  - Joint swelling [Unknown]
  - Arthralgia [Unknown]
  - Influenza [Unknown]
  - Infection [Unknown]
  - Anaemia [Unknown]
